FAERS Safety Report 11008347 (Version 1)
Quarter: 2015Q2

REPORT INFORMATION
  Report Type: Spontaneous
  Country: US (occurrence: US)
  Receive Date: 20150410
  Receipt Date: 20150410
  Transmission Date: 20150821
  Serious: Yes (Hospitalization)
  Sender: FDA-Public Use
  Company Number: US-BIOGENIDEC-2015BI045247

PATIENT
  Sex: Female

DRUGS (1)
  1. TYSABRI [Suspect]
     Active Substance: NATALIZUMAB
     Indication: MULTIPLE SCLEROSIS
     Route: 042

REACTIONS (5)
  - Cognitive disorder [Unknown]
  - Nuclear magnetic resonance imaging abnormal [Unknown]
  - Abasia [Unknown]
  - Multiple sclerosis relapse [Unknown]
  - Speech disorder [Unknown]

NARRATIVE: CASE EVENT DATE: 2009
